FAERS Safety Report 20904905 (Version 1)
Quarter: 2022Q2

REPORT INFORMATION
  Report Type: Report from Study
  Country: US (occurrence: US)
  Receive Date: 20220602
  Receipt Date: 20220602
  Transmission Date: 20220721
  Serious: Yes (Other)
  Sender: FDA-Public Use
  Company Number: US-BRISTOL-MYERS SQUIBB COMPANY-2022-047035

PATIENT
  Age: 87 Year
  Sex: Female
  Weight: 58.97 kg

DRUGS (2)
  1. ELIQUIS [Suspect]
     Active Substance: APIXABAN
     Indication: Deep vein thrombosis
     Dosage: DOSE : 5 MG;     FREQ : TWICE DAILY
     Route: 048
     Dates: start: 202111
  2. SYNTHROID [Concomitant]
     Active Substance: LEVOTHYROXINE SODIUM
     Indication: Hypersensitivity
     Route: 065

REACTIONS (6)
  - Blood pressure increased [Unknown]
  - Dizziness [Unknown]
  - Balance disorder [Unknown]
  - Back pain [Unknown]
  - Lumbar spinal stenosis [Unknown]
  - Intervertebral disc protrusion [Unknown]
